FAERS Safety Report 11432995 (Version 2)
Quarter: 2015Q3

REPORT INFORMATION
  Report Type: Spontaneous
  Country: GB (occurrence: GB)
  Receive Date: 20150829
  Receipt Date: 20150908
  Transmission Date: 20151125
  Serious: Yes (Hospitalization, Other)
  Sender: FDA-Public Use
  Company Number: GB-AMGEN-GBRSP2015086813

PATIENT
  Sex: Male

DRUGS (1)
  1. ARANESP [Suspect]
     Active Substance: DARBEPOETIN ALFA
     Indication: PRODUCT USED FOR UNKNOWN INDICATION
     Dosage: UNK
     Route: 065

REACTIONS (6)
  - Infection [Unknown]
  - Lower respiratory tract infection [Unknown]
  - Anaemia [Unknown]
  - Asthenia [Unknown]
  - Abnormal behaviour [Unknown]
  - Kidney infection [Unknown]

NARRATIVE: CASE EVENT DATE: 201508
